FAERS Safety Report 5154082-2 (Version None)
Quarter: 2006Q4

REPORT INFORMATION
  Report Type: 
  Country: None (occurrence: None)
  Receive Date: 20061116
  Receipt Date: 20061116
  Transmission Date: 20070319
  Serious: Yes (Other)
  Sender: FDA-Public Use
  Company Number: None

PATIENT
  Age: 27 Year
  Sex: Male
  Weight: 54.4316 kg

DRUGS (1)
  1. PREDNISONE [Suspect]
     Indication: COLITIS ULCERATIVE
     Dosage: 10MG 5X/DAY PO
     Route: 048
     Dates: start: 20060406, end: 20061110

REACTIONS (6)
  - ALOPECIA [None]
  - BLOOD GLUCOSE ABNORMAL [None]
  - HYPOTRICHOSIS [None]
  - SCAR [None]
  - SKIN INFECTION [None]
  - SKIN LESION [None]
